FAERS Safety Report 12963074 (Version 3)
Quarter: 2016Q4

REPORT INFORMATION
  Report Type: Spontaneous
  Country: US (occurrence: US)
  Receive Date: 20161122
  Receipt Date: 20161220
  Transmission Date: 20170207
  Serious: Yes (Other)
  Sender: FDA-Public Use
  Company Number: US-BEH-2016075243

PATIENT
  Age: 58 Year
  Sex: Female
  Weight: 54.42 kg

DRUGS (1)
  1. HIZENTRA [Suspect]
     Active Substance: HUMAN IMMUNOGLOBULIN G
     Indication: IMMUNODEFICIENCY
     Dosage: 8 G, QW
     Route: 058
     Dates: start: 20161023, end: 20161106

REACTIONS (6)
  - Injection site erythema [Recovering/Resolving]
  - Suspected transmission of an infectious agent via product [Recovering/Resolving]
  - Nausea [Recovering/Resolving]
  - Injection site swelling [Recovering/Resolving]
  - Injection site pruritus [Recovering/Resolving]
  - Cellulitis [Recovering/Resolving]

NARRATIVE: CASE EVENT DATE: 20161023
